FAERS Safety Report 13012834 (Version 2)
Quarter: 2017Q1

REPORT INFORMATION
  Report Type: Spontaneous
  Country: IT (occurrence: IT)
  Receive Date: 20161209
  Receipt Date: 20170216
  Transmission Date: 20170428
  Serious: Yes (Hospitalization, Other)
  Sender: FDA-Public Use
  Company Number: IT-PFIZER INC-2016569470

PATIENT
  Age: 48 Year
  Sex: Male

DRUGS (7)
  1. XANAX [Suspect]
     Active Substance: ALPRAZOLAM
     Indication: ANXIETY
     Dosage: 15 MG, TOTAL
     Route: 048
     Dates: start: 20161128, end: 20161128
  2. FENTANIL [Suspect]
     Active Substance: FENTANYL
     Indication: PAIN
     Dosage: 300 UG, TOTAL
     Route: 062
     Dates: start: 20161128, end: 20161128
  3. DAPAROX /00830802/ [Suspect]
     Active Substance: PAROXETINE HYDROCHLORIDE
     Indication: DEPRESSION
     Dosage: 840 MG, TOTAL
     Route: 048
     Dates: start: 20161128, end: 20161128
  4. DEPAKIN [Suspect]
     Active Substance: VALPROATE SODIUM
     Indication: MOOD SWINGS
     Dosage: 20 G, TOTAL
     Route: 048
     Dates: start: 20161128, end: 20161128
  5. GABAPENTIN. [Suspect]
     Active Substance: GABAPENTIN
     Indication: MOOD SWINGS
     Dosage: 12 G, TOTAL
     Route: 048
     Dates: start: 20161128, end: 20161128
  6. LIORESAL [Concomitant]
     Active Substance: BACLOFEN
     Indication: PARALYSIS
     Dosage: 50 MG, UNK
     Route: 048
     Dates: start: 20150101
  7. TARGIN [Suspect]
     Active Substance: NALOXONE HYDROCHLORIDE\OXYCODONE HYDROCHLORIDE
     Indication: PAIN
     Dosage: 70 DF, TOTAL
     Route: 048
     Dates: start: 20161128, end: 20161128

REACTIONS (5)
  - Bradyphrenia [Recovered/Resolved]
  - Intentional self-injury [Recovered/Resolved]
  - Overdose [Recovered/Resolved]
  - Suicide attempt [Recovered/Resolved]
  - Product use issue [Unknown]

NARRATIVE: CASE EVENT DATE: 20161128
